FAERS Safety Report 26134439 (Version 1)
Quarter: 2025Q4

REPORT INFORMATION
  Report Type: Spontaneous
  Country: EU (occurrence: EU)
  Receive Date: 20251209
  Receipt Date: 20251209
  Transmission Date: 20260118
  Serious: Yes (Other)
  Sender: AUROBINDO
  Company Number: EU-ABCFARMA-20210396

PATIENT
  Age: 71 Year
  Sex: Male

DRUGS (35)
  1. ALPRAZOLAM [Suspect]
     Active Substance: ALPRAZOLAM
     Indication: Sleep disorder
     Dosage: 1 MILLIGRAM, ONCE A DAY
     Route: 065
     Dates: start: 2013
  2. ALPRAZOLAM [Suspect]
     Active Substance: ALPRAZOLAM
     Indication: Poor quality sleep
     Dosage: 50 MILLIGRAM, 3 TIMES A DAY
     Route: 065
  3. ALFUZOSIN [Suspect]
     Active Substance: ALFUZOSIN
     Indication: Hypertonic bladder
     Dosage: UNK, EVERY EVENING
     Route: 065
  4. CIPROFLOXACIN [Suspect]
     Active Substance: CIPROFLOXACIN
     Indication: Product used for unknown indication
     Dosage: UNK
     Route: 065
  5. ETORICOXIB [Suspect]
     Active Substance: ETORICOXIB
     Indication: Hypertonic bladder
     Dosage: 60 MILLIGRAM (FOR 2 WEEKS)
     Route: 065
  6. ETORICOXIB [Suspect]
     Active Substance: ETORICOXIB
     Indication: Abdominal pain lower
  7. KETOROLAC [Suspect]
     Active Substance: KETOROLAC TROMETHAMINE
     Indication: Pain
     Dosage: UNK
     Route: 065
  8. LEVOFLOXACIN [Suspect]
     Active Substance: LEVOFLOXACIN
     Indication: Escherichia infection
     Dosage: 500 MILLIGRAM (FOR TWO WEEKS)
     Route: 065
  9. LEVOFLOXACIN [Suspect]
     Active Substance: LEVOFLOXACIN
     Indication: Hypertonic bladder
     Dosage: UNK
     Route: 065
  10. MEROPENEM [Suspect]
     Active Substance: MEROPENEM
     Indication: Escherichia infection
     Dosage: UNK
  11. MIRTAZAPINE [Suspect]
     Active Substance: MIRTAZAPINE
     Indication: Affective disorder
     Dosage: UNK
     Route: 065
  12. MIRTAZAPINE [Suspect]
     Active Substance: MIRTAZAPINE
     Indication: Memory impairment
  13. PAROXETINE [Suspect]
     Active Substance: PAROXETINE
     Indication: Memory impairment
     Dosage: UNK
     Route: 065
  14. PAROXETINE [Suspect]
     Active Substance: PAROXETINE
     Indication: Affective disorder
  15. SOLIFENACIN [Suspect]
     Active Substance: SOLIFENACIN
     Indication: Benign prostatic hyperplasia
     Dosage: UNK
     Route: 065
  16. SERTRALINE [Suspect]
     Active Substance: SERTRALINE HYDROCHLORIDE
     Indication: Affective disorder
     Dosage: UNK
     Route: 065
  17. SERTRALINE [Suspect]
     Active Substance: SERTRALINE HYDROCHLORIDE
     Indication: Memory impairment
  18. QUETIAPINE [Suspect]
     Active Substance: QUETIAPINE
     Indication: Product used for unknown indication
     Dosage: 25 MILLIGRAM, ONCE A DAY (EVENING)
     Route: 065
  19. PREGABALIN [Suspect]
     Active Substance: PREGABALIN
     Indication: Analgesic therapy
     Dosage: 150 MILLIGRAM, TWO TIMES A DAY (AS NEEDED)
     Route: 065
  20. ACETAMINOPHEN [Suspect]
     Active Substance: ACETAMINOPHEN
     Indication: Analgesic therapy
     Dosage: 1 GRAM
     Route: 065
  21. MOMETASONE FUROATE [Suspect]
     Active Substance: MOMETASONE FUROATE
     Indication: Dermatitis
     Dosage: UNK
  22. MOMETASONE FUROATE [Suspect]
     Active Substance: MOMETASONE FUROATE
     Indication: Parapsoriasis
  23. CODEINE [Suspect]
     Active Substance: CODEINE
     Indication: Pain
     Dosage: UNK
     Route: 065
  24. TROSPIUM [Suspect]
     Active Substance: TROSPIUM
     Indication: Hypertonic bladder
     Dosage: UNK
     Route: 065
  25. MIRABEGRON [Suspect]
     Active Substance: MIRABEGRON
     Indication: Dysuria
     Dosage: UNK
     Route: 065
  26. MIRABEGRON [Suspect]
     Active Substance: MIRABEGRON
     Indication: Benign prostatic hyperplasia
  27. FESOTERODINE [Suspect]
     Active Substance: FESOTERODINE
     Indication: Hypertonic bladder
     Dosage: UNK
     Route: 065
  28. PRULIFLOXACIN [Suspect]
     Active Substance: PRULIFLOXACIN
     Indication: Hypertonic bladder
     Dosage: UNK (FOR TEN DAYS)
     Route: 065
  29. PHLOROGLUCINOL [Suspect]
     Active Substance: PHLOROGLUCINOL
     Indication: Hypertonic bladder
     Dosage: UNK
     Route: 065
  30. SERENOA REPENS WHOLE [Suspect]
     Active Substance: SERENOA REPENS WHOLE
     Indication: Hypertonic bladder
     Dosage: UNK
     Route: 065
  31. OXYBUTYNIN [Suspect]
     Active Substance: OXYBUTYNIN
     Indication: Hypertonic bladder
     Dosage: UNK
     Route: 065
  32. ACETAMINOPHEN [Suspect]
     Active Substance: ACETAMINOPHEN
     Indication: Pain
     Dosage: UNK
     Route: 065
  33. BECLOMETHASONE DIPROPIONATE [Suspect]
     Active Substance: BECLOMETHASONE DIPROPIONATE
     Indication: Hypertonic bladder
     Dosage: UNK
  34. NALOXONE [Suspect]
     Active Substance: NALOXONE
     Indication: Analgesic therapy
     Dosage: UNK
     Route: 065
  35. NALOXONE [Suspect]
     Active Substance: NALOXONE
     Dosage: 20 MILLIGRAM (ONE TO THREE  TIMES A DAY)
     Route: 065

REACTIONS (4)
  - Tendon disorder [Unknown]
  - General physical health deterioration [Unknown]
  - Product use in unapproved indication [Unknown]
  - Drug ineffective [Unknown]

NARRATIVE: CASE EVENT DATE: 20170901
